FAERS Safety Report 19011590 (Version 2)
Quarter: 2022Q2

REPORT INFORMATION
  Report Type: Spontaneous
  Country: US (occurrence: US)
  Receive Date: 20210316
  Receipt Date: 20220412
  Transmission Date: 20220721
  Serious: Yes (Hospitalization, Other)
  Sender: FDA-Public Use
  Company Number: US-AMGEN-USASP2021038861

PATIENT

DRUGS (2)
  1. IVABRADINE [Suspect]
     Active Substance: IVABRADINE
     Indication: Sinus tachycardia
     Dosage: UNK
     Route: 065
  2. IVABRADINE [Suspect]
     Active Substance: IVABRADINE
     Indication: Off label use

REACTIONS (13)
  - Pericarditis [Unknown]
  - Pneumothorax [Unknown]
  - Pleural effusion [Unknown]
  - Cardiac pacemaker insertion [Unknown]
  - Bradycardia [Unknown]
  - Subclavian vein thrombosis [Unknown]
  - Diaphragmatic paralysis [Unknown]
  - Treatment failure [Unknown]
  - Tachycardia [Unknown]
  - Palpitations [Unknown]
  - Haematoma [Unknown]
  - Pyrexia [Unknown]
  - Off label use [Unknown]
